FAERS Safety Report 5019798-7 (Version None)
Quarter: 2006Q2

REPORT INFORMATION
  Report Type: 
  Country: None (occurrence: None)
  Receive Date: 20060607
  Receipt Date: 20060531
  Transmission Date: 20061013
  Serious: Yes (Hospitalization, Other)
  Sender: FDA-Public Use
  Company Number: BR-BRISTOL-MYERS SQUIBB COMPANY-13399084

PATIENT
  Age: 52 Year
  Sex: Male
  Weight: 60 kg

DRUGS (3)
  1. BECENUN [Suspect]
     Indication: GLIOBLASTOMA MULTIFORME
     Route: 042
     Dates: start: 20060522
  2. DECADRON [Concomitant]
     Route: 048
  3. HIDANTAL [Concomitant]
     Route: 048

REACTIONS (5)
  - ERYTHEMA [None]
  - MALIGNANT NEOPLASM PROGRESSION [None]
  - PERIORBITAL OEDEMA [None]
  - PYREXIA [None]
  - RASH [None]
